FAERS Safety Report 18725897 (Version 1)
Quarter: 2021Q1

REPORT INFORMATION
  Report Type: Spontaneous
  Country: GB (occurrence: GB)
  Receive Date: 20210111
  Receipt Date: 20210111
  Transmission Date: 20210419
  Serious: Yes (Other)
  Sender: FDA-Public Use
  Company Number: GB-MYLANLABS-2021M1000200

PATIENT
  Age: 45 Year
  Sex: Female
  Weight: 53 kg

DRUGS (28)
  1. LOPERAMIDE [Concomitant]
     Active Substance: LOPERAMIDE
     Dosage: WHEN NEEDED
     Dates: start: 20200911
  2. CETIRIZINE [Concomitant]
     Active Substance: CETIRIZINE HYDROCHLORIDE
     Dosage: TWO TO BE TAKEN AN HOUR BEFORE DIALYSIS
     Dates: start: 20200911
  3. DOXAZOSIN [Concomitant]
     Active Substance: DOXAZOSIN MESYLATE
     Dosage: 1 DOSAGE FORM, QD
     Dates: start: 20200911
  4. OXYCODONE HYDROCHLORIDE. [Concomitant]
     Active Substance: OXYCODONE HYDROCHLORIDE
     Dosage: 10?15MG EVERY 2 HOURS
     Dates: start: 20200911
  5. EMLA [Concomitant]
     Active Substance: LIDOCAINE\PRILOCAINE
     Dosage: APPLY AS DIRECTED
     Dates: start: 20200911
  6. GLUCOSE [Concomitant]
     Active Substance: DEXTROSE
     Indication: HYPOGLYCAEMIA
     Dosage: UNK UNK, PRN
     Dates: start: 20200911
  7. SEVELAMER [Concomitant]
     Active Substance: SEVELAMER
     Dosage: 6 DOSAGE FORM, QD
     Dates: start: 20200911
  8. CLARITHROMYCIN. [Suspect]
     Active Substance: CLARITHROMYCIN
     Indication: PRODUCT USED FOR UNKNOWN INDICATION
     Dosage: 500 MILLIGRAM
     Dates: start: 20201214
  9. SUMATRIPTAN. [Concomitant]
     Active Substance: SUMATRIPTAN
     Indication: HEADACHE
     Dosage: TAKE ONE AS SOON AS HEADACHES AS STARTS, ONE TA.
     Dates: start: 20200911, end: 20201106
  10. ONDANSETRON [Concomitant]
     Active Substance: ONDANSETRON
     Indication: NAUSEA
     Dosage: TAKE 1 TABLET, UP TO 3 TIMES A DAY WHEN NAUSEAT
     Dates: start: 20200911
  11. DESOGESTREL [Concomitant]
     Active Substance: DESOGESTREL
     Dosage: 1 DOSAGE FORM, QD
     Dates: start: 20200911
  12. CHLORPHENAMINE [Concomitant]
     Active Substance: CHLORPHENIRAMINE MALEATE
     Dosage: ONE TO BE TAKEN EVERY FOUR TO SIX HOURS
     Dates: start: 20200911
  13. OMEPRAZOLE. [Concomitant]
     Active Substance: OMEPRAZOLE
     Dosage: 1 DOSAGE FORM, QD
     Dates: start: 20200911
  14. AMLODIPINE [Concomitant]
     Active Substance: AMLODIPINE BESYLATE
     Dosage: 1 DOSAGE FORM, QD
     Dates: start: 20200911
  15. NOVORAPID [Concomitant]
     Active Substance: INSULIN ASPART
     Dosage: IMMEDIATELY BEFORE.
     Route: 058
     Dates: start: 20200911
  16. TOUJEO [Concomitant]
     Active Substance: INSULIN GLARGINE
     Dosage: 15 INTERNATIONAL UNIT, QD
     Dates: start: 20200911
  17. ARANESP [Concomitant]
     Active Substance: DARBEPOETIN ALFA
     Dosage: USE AS DIRECTED
     Dates: start: 20200911
  18. CYCLIZINE [Concomitant]
     Active Substance: CYCLIZINE
     Dosage: 3 DOSAGE FORM, QD
     Dates: start: 20200911
  19. DOXYCYCLINE. [Concomitant]
     Active Substance: DOXYCYCLINE
     Dosage: TWO NOW THEN ONE DAILY (PLEASE COMPLETE THE COU.
     Dates: start: 20201214
  20. ALFACALCIDOL [Concomitant]
     Active Substance: ALFACALCIDOL
     Dosage: 1 DOSAGE FORM, QD
     Dates: start: 20200911
  21. METOLAZONE. [Concomitant]
     Active Substance: METOLAZONE
     Dosage: 1 DOSAGE FORM, QD
     Dates: start: 20200911
  22. RIZATRIPTAN. [Concomitant]
     Active Substance: RIZATRIPTAN
     Dosage: AS DIRECTED
     Dates: start: 20201106, end: 20201204
  23. GAVISCON ADVANCE                   /01340901/ [Concomitant]
     Dosage: 5ML ? 10ML 4 TIMES/DAY
     Dates: start: 20200911
  24. FUROSEMIDE. [Concomitant]
     Active Substance: FUROSEMIDE
     Dosage: EACH MORNING
     Dates: start: 20200911
  25. HYDROCORTISONE. [Concomitant]
     Active Substance: HYDROCORTISONE
     Dosage: APPLY
     Dates: start: 20201214
  26. RENAVIT [Concomitant]
     Dosage: 1 DOSAGE FORM, QD
     Dates: start: 20200911
  27. DOMPERIDONE [Concomitant]
     Active Substance: DOMPERIDONE
     Dosage: ONE TO BE TAKEN UP TO THREE TIMES A DAY. MAXIMU.
     Dates: start: 20200911
  28. CODEINE PHOSPHATE [Concomitant]
     Active Substance: CODEINE PHOSPHATE
     Dosage: WHEN REQUIRED.
     Dates: start: 20200911

REACTIONS (4)
  - Mucosal inflammation [Not Recovered/Not Resolved]
  - Blister [Not Recovered/Not Resolved]
  - Stomatitis [Unknown]
  - Diarrhoea [Not Recovered/Not Resolved]

NARRATIVE: CASE EVENT DATE: 20201214
